FAERS Safety Report 13945277 (Version 2)
Quarter: 2018Q1

REPORT INFORMATION
  Report Type: Spontaneous
  Country: US (occurrence: US)
  Receive Date: 20170907
  Receipt Date: 20180104
  Transmission Date: 20180508
  Serious: Yes (Hospitalization)
  Sender: FDA-Public Use
  Company Number: US-DSJP-DSU-2017-135655

PATIENT

DRUGS (1)
  1. BENICAR [Suspect]
     Active Substance: OLMESARTAN MEDOXOMIL
     Indication: PRODUCT USED FOR UNKNOWN INDICATION
     Dosage: 40 MG, QD
     Route: 048
     Dates: start: 20120507, end: 20170925

REACTIONS (12)
  - Weight decreased [Recovered/Resolved]
  - Gastrointestinal haemorrhage [Not Recovered/Not Resolved]
  - Hypokalaemia [Recovered/Resolved]
  - Bile duct stone [Recovering/Resolving]
  - Helicobacter infection [Not Recovered/Not Resolved]
  - Hiatus hernia [Unknown]
  - Diverticulum [Recovering/Resolving]
  - Haemorrhoids [Recovering/Resolving]
  - Anaemia [Recovering/Resolving]
  - Gastric ulcer [Not Recovered/Not Resolved]
  - Colon adenoma [Recovered/Resolved]
  - Dizziness [Unknown]

NARRATIVE: CASE EVENT DATE: 20130716
